FAERS Safety Report 16674741 (Version 1)
Quarter: 2019Q3

REPORT INFORMATION
  Report Type: Spontaneous
  Country: IN (occurrence: IN)
  Receive Date: 20190806
  Receipt Date: 20190806
  Transmission Date: 20191004
  Serious: Yes (Death, Hospitalization)
  Sender: FDA-Public Use
  Company Number: IN-PFIZER INC-2019044094

PATIENT
  Age: 64 Year
  Sex: Male

DRUGS (1)
  1. SUTENT [Suspect]
     Active Substance: SUNITINIB MALATE
     Indication: METASTATIC RENAL CELL CARCINOMA
     Dosage: 50 MG, CYCLIC(ONCE A DAY, TWO WEEKS ON AND ONE WEEK OFF)
     Route: 048
     Dates: start: 20190129

REACTIONS (3)
  - Neoplasm progression [Unknown]
  - Gastrointestinal haemorrhage [Unknown]
  - Death [Fatal]
